FAERS Safety Report 5741998-9 (Version None)
Quarter: 2008Q2

REPORT INFORMATION
  Report Type: 
  Country: None (occurrence: None)
  Receive Date: 20080514
  Receipt Date: 20080514
  Transmission Date: 20081010
  Serious: Yes (Other)
  Sender: FDA-Public Use
  Company Number: None

PATIENT
  Sex: Male
  Weight: 24.9478 kg

DRUGS (2)
  1. RHINOCORT [Suspect]
     Indication: MULTIPLE ALLERGIES
     Dosage: 1 SPRAY PER NOSTRIL ONCE DAILY-BEDTIME NASAL
     Route: 045
     Dates: start: 20080325, end: 20080424
  2. RHINOCORT [Suspect]
     Indication: NASAL CONGESTION
     Dosage: 1 SPRAY PER NOSTRIL ONCE DAILY-BEDTIME NASAL
     Route: 045
     Dates: start: 20080325, end: 20080424

REACTIONS (4)
  - AGGRESSION [None]
  - FEELING ABNORMAL [None]
  - SUICIDAL IDEATION [None]
  - THINKING ABNORMAL [None]
